FAERS Safety Report 11661307 (Version 1)
Quarter: 2015Q4

REPORT INFORMATION
  Report Type: Spontaneous
  Country: US (occurrence: US)
  Receive Date: 20151026
  Receipt Date: 20151026
  Transmission Date: 20160304
  Serious: No
  Sender: FDA-Public Use
  Company Number: US-JUBILANT CADISTA PHARMACEUTICALS-2015JUB00081

PATIENT
  Age: 43 Year
  Sex: Male
  Weight: 78.6 kg

DRUGS (13)
  1. PREDNISONE. [Suspect]
     Active Substance: PREDNISONE
     Indication: SARCOIDOSIS
     Dosage: 20 MG, 1X/DAY
     Route: 048
     Dates: start: 20150120
  2. CIPROFLOXACIN. [Concomitant]
     Active Substance: CIPROFLOXACIN
     Dosage: 750 MG, AS NEEDED
     Dates: start: 20141002
  3. VITAMIN D3 [Concomitant]
     Active Substance: CHOLECALCIFEROL
     Dosage: 2000 IU, 1X/DAY
     Dates: start: 20150115
  4. AMLODIPINE [Concomitant]
     Active Substance: AMLODIPINE BESYLATE
     Dosage: 10 MG, 1X/DAY
     Dates: start: 20140909
  5. MINOXIDIL. [Concomitant]
     Active Substance: MINOXIDIL
     Dosage: 10 MG, 2X/DAY
     Dates: start: 20140909
  6. VENOFER [Concomitant]
     Active Substance: IRON SUCROSE
     Dosage: 100 MG, 1X/MONTH
     Route: 042
  7. ASPIRIN. [Concomitant]
     Active Substance: ASPIRIN
     Dosage: 325 MG, 1X/DAY
     Dates: start: 20140909
  8. FERROUS SULFATE [Concomitant]
     Active Substance: FERROUS SULFATE\FERROUS SULFATE, DRIED
     Dosage: 325 MG, 1X/DAY
     Dates: start: 20140909
  9. GENTAMICIN SULFATE CREAM [Concomitant]
     Dosage: UNK, AS NEEDED
     Route: 061
     Dates: start: 20140909
  10. METOPROLOL [Concomitant]
     Active Substance: METOPROLOL
     Dosage: 100 MG, 2X/DAY
     Dates: start: 20140909
  11. SENSIPAR [Concomitant]
     Active Substance: CINACALCET HYDROCHLORIDE
     Dosage: 30 MG, 1X/DAY
     Dates: start: 20150113
  12. LASIX [Concomitant]
     Active Substance: FUROSEMIDE
     Dosage: 40 MG, 2X/DAY
     Dates: start: 20140909
  13. EPOGEN [Concomitant]
     Active Substance: ERYTHROPOIETIN
     Dosage: 30000 IU, 2X/MONTH
     Route: 058

REACTIONS (2)
  - Weight increased [Recovering/Resolving]
  - Fluid retention [Recovering/Resolving]

NARRATIVE: CASE EVENT DATE: 201501
